FAERS Safety Report 5799634-1 (Version None)
Quarter: 2008Q3

REPORT INFORMATION
  Report Type: 
  Country: None (occurrence: None)
  Receive Date: 20080702
  Receipt Date: 20080702
  Transmission Date: 20090109
  Serious: Yes (Other)
  Sender: FDA-Public Use
  Company Number: None

PATIENT
  Age: 81 Year
  Sex: Male
  Weight: 79.3795 kg

DRUGS (7)
  1. DIGITEK 0.25MG MYLAN/BERTEK [Suspect]
     Dosage: TAKE 1 TABLET DAILY ORALLY
     Route: 048
     Dates: start: 20080320
  2. LIDODERM [Concomitant]
  3. VYTORIN [Concomitant]
  4. VERAPAMIL EXTENDED-RELEASE [Concomitant]
  5. GEN DYAZIDE [Concomitant]
  6. JANUVIA [Concomitant]
  7. TRICOR [Concomitant]

REACTIONS (2)
  - DIZZINESS [None]
  - PHARMACEUTICAL PRODUCT COMPLAINT [None]
